FAERS Safety Report 25226404 (Version 2)
Quarter: 2025Q2

REPORT INFORMATION
  Report Type: Spontaneous
  Country: NO (occurrence: NO)
  Receive Date: 20250422
  Receipt Date: 20250617
  Transmission Date: 20250716
  Serious: Yes (Disabling, Other)
  Sender: TEVA
  Company Number: None

PATIENT
  Age: 35 Year
  Sex: Male
  Weight: 99 kg

DRUGS (3)
  1. CIPROFLOXACIN [Suspect]
     Active Substance: CIPROFLOXACIN
     Indication: Amoebiasis
     Route: 065
     Dates: start: 20230427, end: 20230430
  2. STAMARIL [Suspect]
     Active Substance: YELLOW FEVER VIRUS STRAIN 17D-204 LIVE ANTIGEN
     Indication: Immunisation
     Route: 058
     Dates: start: 20230314
  3. TINIDAZOLE [Suspect]
     Active Substance: TINIDAZOLE
     Indication: Amoebiasis
     Route: 065
     Dates: start: 20230426, end: 20230429

REACTIONS (2)
  - Narcolepsy [Not Recovered/Not Resolved]
  - Cataplexy [Not Recovered/Not Resolved]

NARRATIVE: CASE EVENT DATE: 20230501
